FAERS Safety Report 6810279-4 (Version None)
Quarter: 2010Q2

REPORT INFORMATION
  Report Type: 
  Country: None (occurrence: None)
  Receive Date: 20100630
  Receipt Date: 20100621
  Transmission Date: 20101027
  Serious: Yes (Hospitalization, Congenital Anomaly)
  Sender: FDA-Public Use
  Company Number: GXKR2010FR06930

PATIENT
  Sex: Male
  Weight: 3.2 kg

DRUGS (3)
  1. PREDNISONE (NGX) [Suspect]
     Dosage: MATERNAL DOSE: 11 MG/DAY
     Route: 064
  2. BECLOMETHASONE (NGX) [Suspect]
     Dosage: MATERNAL DOSE: 200 ?G, UNK
     Route: 064
  3. FLUTICASONE W/SALMETEROL [Suspect]
     Dosage: MATERNAL DOSE: 1,000 ?G/50 ?G
     Route: 064

REACTIONS (8)
  - ADRENAL INSUFFICIENCY NEONATAL [None]
  - CONVULSION [None]
  - DRUG EXPOSURE DURING PREGNANCY [None]
  - ERYSIPELAS [None]
  - HAEMANGIOMA [None]
  - HYPOGLYCAEMIA [None]
  - HYPOSPADIAS [None]
  - SURGERY [None]
